FAERS Safety Report 12853901 (Version 2)
Quarter: 2017Q4

REPORT INFORMATION
  Report Type: Report from Study
  Country: RU (occurrence: RU)
  Receive Date: 20161017
  Receipt Date: 20171030
  Transmission Date: 20180320
  Serious: Yes (Hospitalization)
  Sender: FDA-Public Use
  Company Number: RU-B.I. PHARMACEUTICALS,INC./RIDGEFIELD-2016-BI-59862BI

PATIENT
  Age: 17 Year
  Sex: Male
  Weight: 65 kg

DRUGS (1)
  1. DABIGATRAN [Suspect]
     Active Substance: DABIGATRAN
     Indication: EMBOLISM VENOUS
     Dosage: STRENGTH: 300
     Route: 065
     Dates: start: 20160822, end: 20160912

REACTIONS (2)
  - Pulmonary artery thrombosis [Recovered/Resolved]
  - Embolism venous [Not Recovered/Not Resolved]

NARRATIVE: CASE EVENT DATE: 201609
